FAERS Safety Report 8995977 (Version 1)
Quarter: 2013Q1

REPORT INFORMATION
  Report Type: Spontaneous
  Country: US (occurrence: US)
  Receive Date: 20130103
  Receipt Date: 20130103
  Transmission Date: 20140127
  Serious: No
  Sender: FDA-Public Use
  Company Number: US-ABBOTT-12P-163-1008594-00

PATIENT
  Sex: Female
  Weight: 59.02 kg

DRUGS (4)
  1. SYNTHROID [Suspect]
     Indication: HYPOTHYROIDISM
     Dates: start: 1997
  2. PRILOSEC [Interacting]
     Indication: GASTROOESOPHAGEAL REFLUX DISEASE
  3. UNSPECIFIED [Interacting]
     Indication: PRODUCT USED FOR UNKNOWN INDICATION
  4. EFFEXOR [Concomitant]
     Indication: PRODUCT USED FOR UNKNOWN INDICATION

REACTIONS (2)
  - Blood thyroid stimulating hormone increased [Recovered/Resolved]
  - Drug interaction [Unknown]
